FAERS Safety Report 8079337-3 (Version None)
Quarter: 2012Q1

REPORT INFORMATION
  Report Type: 
  Country: None (occurrence: None)
  Receive Date: 20120128
  Receipt Date: 20110822
  Transmission Date: 20120608
  Serious: No
  Sender: FDA-Public Use
  Company Number: US-ABBOTT-11P-163-0848443-00

PATIENT
  Age: 19 Year
  Sex: Female

DRUGS (3)
  1. ORTHO TRI-CYCLEN [Concomitant]
     Indication: CONTRACEPTION
     Dosage: DAILY
  2. HUMIRA [Suspect]
     Indication: PSORIATIC ARTHROPATHY
     Dates: start: 20110617
  3. METHOTREXATE [Concomitant]
     Indication: PRODUCT USED FOR UNKNOWN INDICATION
     Dosage: SIX TABLETS PER WEEK

REACTIONS (1)
  - PHARYNGITIS STREPTOCOCCAL [None]
